FAERS Safety Report 6016084-3 (Version None)
Quarter: 2008Q4

REPORT INFORMATION
  Report Type: 
  Country: None (occurrence: None)
  Receive Date: 20081222
  Receipt Date: 20081216
  Transmission Date: 20090506
  Serious: Yes (Hospitalization)
  Sender: FDA-Public Use
  Company Number: US-ELI_LILLY_AND_COMPANY-US200812004201

PATIENT
  Sex: Female

DRUGS (2)
  1. FORTEO [Suspect]
     Dates: start: 20080401, end: 20080601
  2. FORTEO [Suspect]
     Dates: start: 20080101

REACTIONS (7)
  - CONSTIPATION [None]
  - DYSGEUSIA [None]
  - HYSTERECTOMY [None]
  - MUSCULAR WEAKNESS [None]
  - NIGHT SWEATS [None]
  - OEDEMA PERIPHERAL [None]
  - PRURITUS [None]
